FAERS Safety Report 13077571 (Version 1)
Quarter: 2016Q4

REPORT INFORMATION
  Report Type: Spontaneous
  Country: US (occurrence: US)
  Receive Date: 20161231
  Receipt Date: 20161231
  Transmission Date: 20170207
  Serious: Yes (Hospitalization)
  Sender: FDA-Public Use
  Company Number: US-INDICUS PHARMA-000467

PATIENT
  Age: 34 Year
  Sex: Male

DRUGS (2)
  1. CARISOPRODOL. [Suspect]
     Active Substance: CARISOPRODOL
     Dosage: 10 TO 30 TABLETS (5 TO 15 G) DAILY
  2. MEPROBAMATE. [Concomitant]
     Active Substance: MEPROBAMATE

REACTIONS (6)
  - Withdrawal syndrome [Recovering/Resolving]
  - Dyspnoea [Recovering/Resolving]
  - Unresponsive to stimuli [Unknown]
  - Agitation [Recovering/Resolving]
  - Vomiting [Unknown]
  - Overdose [Unknown]
